FAERS Safety Report 7595548-5 (Version None)
Quarter: 2011Q3

REPORT INFORMATION
  Report Type: 
  Country: None (occurrence: None)
  Receive Date: 20110707
  Receipt Date: 20110615
  Transmission Date: 20111222
  Serious: Yes (Hospitalization)
  Sender: FDA-Public Use
  Company Number: US-GLAXOSMITHKLINE-A0869857A

PATIENT
  Sex: Male
  Weight: 70 kg

DRUGS (10)
  1. ACCUPRIL [Concomitant]
  2. SYNTHROID [Concomitant]
  3. ASPIRIN [Concomitant]
  4. INSULIN [Concomitant]
  5. LIPITOR [Concomitant]
  6. PENTOXIFYLLINE [Concomitant]
  7. DARVOCET [Concomitant]
  8. PLAVIX [Concomitant]
  9. ROSIGLITAZONE MALEATE [Suspect]
     Indication: TYPE 2 DIABETES MELLITUS
     Dosage: 8MG TWICE PER DAY
     Route: 048
  10. ATENOLOL [Concomitant]

REACTIONS (1)
  - MYOCARDIAL INFARCTION [None]
